FAERS Safety Report 21624458 (Version 1)
Quarter: 2022Q4

REPORT INFORMATION
  Report Type: Spontaneous
  Country: US (occurrence: US)
  Receive Date: 20221121
  Receipt Date: 20221121
  Transmission Date: 20230113
  Serious: Yes (Death, Hospitalization, Other)
  Sender: FDA-Public Use
  Company Number: US-AMGEN-USASP2022197322

PATIENT

DRUGS (2)
  1. EPOETIN ALFA [Suspect]
     Active Substance: ERYTHROPOIETIN
     Indication: Anaemia prophylaxis
     Dosage: UNK
     Route: 065
  2. DARBEPOETIN ALFA [Suspect]
     Active Substance: DARBEPOETIN ALFA
     Indication: Anaemia prophylaxis
     Dosage: UNK
     Route: 065

REACTIONS (9)
  - Death [Fatal]
  - Postoperative wound infection [Unknown]
  - Post procedural haemorrhage [Unknown]
  - Myocardial infarction [Unknown]
  - Haematoma [Unknown]
  - Anaemia [Unknown]
  - Infection [Unknown]
  - Aspiration [Unknown]
  - Fistula [Unknown]
